FAERS Safety Report 4195714 (Version 3)
Quarter: 2014Q1

REPORT INFORMATION
  Report Type: Spontaneous
  Country: US (occurrence: None)
  Receive Date: 20040715
  Receipt Date: 20140228
  Transmission Date: 20141002
  Serious: Yes (Hospitalization)
  Sender: FDA-Public Use
  Company Number: US-JNJFOC-20040603826

PATIENT
  Age: 45 Year
  Sex: Female
  Weight: 66.23 kg

DRUGS (2)
  1. MOTRIN IB [Suspect]
     Indication: PAIN
     Dosage: 600 MG, 1 IN 4 HOUR, ORAL
     Route: 048
     Dates: start: 20040312, end: 20040501
  2. VICODIN [Concomitant]

REACTIONS (2)
  - Hypersensitivity [None]
  - Erythema multiforme [None]
